FAERS Safety Report 17638983 (Version 5)
Quarter: 2025Q2

REPORT INFORMATION
  Report Type: Spontaneous
  Country: US (occurrence: US)
  Receive Date: 20200407
  Receipt Date: 20250507
  Transmission Date: 20250717
  Serious: Yes (Hospitalization, Congenital Anomaly, Other)
  Sender: PURDUE
  Company Number: US-PURDUE PHARMA-USA-2020-0151001

PATIENT
  Sex: Female

DRUGS (12)
  1. OXYCONTIN [Suspect]
     Active Substance: OXYCODONE HYDROCHLORIDE
     Indication: Pain
     Dosage: 10 MG, DAILY
     Route: 048
     Dates: start: 1999
  2. OXYCONTIN [Suspect]
     Active Substance: OXYCODONE HYDROCHLORIDE
     Dosage: 20 MG, DAILY
     Route: 048
     Dates: start: 1999
  3. OXYCONTIN [Suspect]
     Active Substance: OXYCODONE HYDROCHLORIDE
     Route: 048
     Dates: start: 2001, end: 2017
  4. OXYCONTIN [Suspect]
     Active Substance: OXYCODONE HYDROCHLORIDE
     Route: 048
     Dates: start: 2001
  5. OXYCONTIN [Suspect]
     Active Substance: OXYCODONE HYDROCHLORIDE
     Route: 048
  6. OXYCONTIN [Suspect]
     Active Substance: OXYCODONE HYDROCHLORIDE
     Dosage: 40MG, 60MG (ONCE DAILY)
     Route: 048
  7. OXYCODONE HYDROCHLORIDE [Suspect]
     Active Substance: OXYCODONE HYDROCHLORIDE
     Indication: Product used for unknown indication
     Route: 065
  8. OXYCODONE HYDROCHLORIDE [Suspect]
     Active Substance: OXYCODONE HYDROCHLORIDE
     Indication: Pain
     Dosage: 40MG/ TWICE A DAY
     Route: 065
  9. OXYCODONE HYDROCHLORIDE [Suspect]
     Active Substance: OXYCODONE HYDROCHLORIDE
     Route: 065
  10. XANAX [Concomitant]
     Active Substance: ALPRAZOLAM
     Indication: Anxiety
     Dosage: 1 MG, TWO TIMES A DAY
     Route: 048
  11. TYLENOL [Concomitant]
     Active Substance: ACETAMINOPHEN
     Indication: Pain
     Dosage: 325MG, 2 TABLETS EVERY 4 HOURS
     Route: 048
  12. COUMADIN                           /00014802/ [Concomitant]
     Indication: Anticoagulant therapy
     Dosage: 25 MG TABLET, 3 TABLETS BEDTIME
     Route: 065
     Dates: start: 20060923, end: 20060924

REACTIONS (32)
  - Open fracture [Unknown]
  - Road traffic accident [Unknown]
  - Concussion [Unknown]
  - Loss of consciousness [Unknown]
  - Cerebrovascular accident [Unknown]
  - Cardiac disorder [Unknown]
  - Blindness [Unknown]
  - Cervix haemorrhage uterine [Unknown]
  - Shoulder fracture [Unknown]
  - Seizure [Unknown]
  - Drug dependence [Unknown]
  - Hospitalisation [Unknown]
  - Overdose [Recovered/Resolved]
  - Amnesia [Unknown]
  - Migraine [Unknown]
  - Off label use [Recovered/Resolved]
  - Back pain [Unknown]
  - Haemorrhage [Unknown]
  - Emotional distress [Unknown]
  - Illness [Unknown]
  - Overweight [Unknown]
  - Drug withdrawal syndrome [Unknown]
  - Decreased interest [Unknown]
  - Respiratory rate decreased [Unknown]
  - Laziness [Unknown]
  - Diarrhoea [Unknown]
  - Pain [Unknown]
  - Dizziness [Unknown]
  - Vomiting [Unknown]
  - Headache [Unknown]
  - Inadequate analgesia [Unknown]
  - Unevaluable event [Unknown]

NARRATIVE: CASE EVENT DATE: 20010101
